FAERS Safety Report 25229550 (Version 2)
Quarter: 2025Q2

REPORT INFORMATION
  Report Type: Report from Study
  Country: BR (occurrence: BR)
  Receive Date: 20250423
  Receipt Date: 20250529
  Transmission Date: 20250716
  Serious: Yes (Other)
  Sender: CHIESI
  Company Number: BR-CHIESI-AEGR007464

PATIENT
  Age: 17 Year
  Sex: Male

DRUGS (5)
  1. METRELEPTIN [Suspect]
     Active Substance: METRELEPTIN
     Indication: Congenital generalised lipodystrophy
     Dosage: 0.5 MILLILITER, QD
     Route: 065
     Dates: start: 2017
  2. METFORMIN [Concomitant]
     Active Substance: METFORMIN HYDROCHLORIDE
     Indication: Type 1 diabetes mellitus
     Dosage: UNK, BID
  3. LIPIDIL [Concomitant]
     Active Substance: FENOFIBRATE
     Indication: Blood cholesterol
     Dosage: UNK, QD
     Dates: start: 202501
  4. ORLISTAT [Concomitant]
     Active Substance: ORLISTAT
     Indication: Hepatic steatosis
     Dosage: UNK, BID
     Dates: start: 2013
  5. ORLISTAT [Concomitant]
     Active Substance: ORLISTAT
     Indication: Blood triglycerides increased

REACTIONS (15)
  - Femur fracture [Unknown]
  - Urinary retention [Unknown]
  - Renal impairment [Not Recovered/Not Resolved]
  - Diabetic metabolic decompensation [Not Recovered/Not Resolved]
  - Product preparation issue [Unknown]
  - Product use issue [Unknown]
  - Product use issue [Unknown]
  - Product dose omission issue [Unknown]
  - Bladder dilatation [Unknown]
  - Proteinuria [Not Recovered/Not Resolved]
  - Diarrhoea [Unknown]
  - Increased appetite [Not Recovered/Not Resolved]
  - Anxiety [Not Recovered/Not Resolved]
  - Treatment noncompliance [Unknown]
  - Treatment noncompliance [Unknown]

NARRATIVE: CASE EVENT DATE: 20250101
